FAERS Safety Report 6668531-1 (Version None)
Quarter: 2010Q2

REPORT INFORMATION
  Report Type: 
  Country: None (occurrence: None)
  Receive Date: 20100406
  Receipt Date: 20100331
  Transmission Date: 20101027
  Serious: Yes (Hospitalization)
  Sender: FDA-Public Use
  Company Number: US-B.I. PHARMACEUTICALS,INC./RIDGEFIELD-2010-BP-03781BP

PATIENT
  Sex: Male

DRUGS (2)
  1. SPIRIVA [Suspect]
     Dates: start: 20071001
  2. SPIRIVA [Suspect]
     Route: 055
     Dates: start: 20081001

REACTIONS (2)
  - ABDOMINAL HERNIA [None]
  - THROMBOSIS [None]
